FAERS Safety Report 8468565 (Version 2)
Quarter: 2012Q4

REPORT INFORMATION
  Report Type: 
  Country: CO (occurrence: CO)
  Receive Date: 20120320
  Receipt Date: 20121113
  Transmission Date: 20130627
  Serious: Yes (Other)
  Sender: FDA-Public Use
  Company Number: CO-ABBOTT-12P-036-0916702-00

PATIENT
  Age: 42 Year
  Sex: Male

DRUGS (11)
  1. VALPROATE SODIUM [Suspect]
     Indication: EPILEPSY
     Dosage: Once
     Route: 042
  2. VALPROATE SODIUM [Interacting]
     Route: 042
  3. PHENOBARBITAL [Interacting]
     Indication: EPILEPSY
     Dosage: 1400 mg once
  4. PHENOBARBITAL [Interacting]
     Dosage: Daily
  5. TOPIRAMATE [Interacting]
     Indication: EPILEPSY
  6. TOPIRAMATE [Interacting]
     Dosage: 200 mg daily
  7. MIDAZOLAM [Concomitant]
     Indication: PRODUCT USED FOR UNKNOWN INDICATION
  8. PHENYTOIN [Concomitant]
     Indication: PRODUCT USED FOR UNKNOWN INDICATION
  9. LEVETIRACETAM [Concomitant]
     Indication: PRODUCT USED FOR UNKNOWN INDICATION
  10. HYPNOTICS AND SEDATIVES [Concomitant]
     Indication: PRODUCT USED FOR UNKNOWN INDICATION
  11. CARBAMAZEPINE [Concomitant]
     Indication: PRODUCT USED FOR UNKNOWN INDICATION

REACTIONS (5)
  - Hyperammonaemic encephalopathy [Recovered/Resolved]
  - Drug interaction [Recovered/Resolved]
  - Ammonia increased [Recovered/Resolved]
  - Drug level increased [Recovered/Resolved]
  - Alanine aminotransferase increased [Recovered/Resolved]
